FAERS Safety Report 4972231-3 (Version None)
Quarter: 2006Q2

REPORT INFORMATION
  Report Type: 
  Country: None (occurrence: None)
  Receive Date: 20060413
  Receipt Date: 20060406
  Transmission Date: 20061013
  Serious: Yes (Hospitalization, Other)
  Sender: FDA-Public Use
  Company Number: CH-GLAXOSMITHKLINE-B0420166A

PATIENT
  Sex: Female
  Weight: 51 kg

DRUGS (3)
  1. LAMICTAL [Suspect]
     Indication: EPILEPSY
     Dosage: 200MG PER DAY
     Route: 048
     Dates: start: 20050301
  2. SINGULAIR [Concomitant]
     Indication: ASTHMA
     Dosage: 5MG PER DAY
     Route: 048
  3. BETA-2 MIMETICS [Concomitant]
     Indication: ASTHMA
     Route: 055

REACTIONS (3)
  - CHOROIDITIS [None]
  - EYE INFECTION [None]
  - VISUAL DISTURBANCE [None]
